FAERS Safety Report 25218786 (Version 2)
Quarter: 2025Q3

REPORT INFORMATION
  Report Type: Spontaneous
  Country: EU (occurrence: EU)
  Receive Date: 20250421
  Receipt Date: 20250715
  Transmission Date: 20251021
  Serious: Yes (Other)
  Sender: NOVARTIS
  Company Number: EU-002147023-NVSC2025DE064040

PATIENT
  Sex: Female

DRUGS (4)
  1. COSENTYX [Suspect]
     Active Substance: SECUKINUMAB
     Indication: Product used for unknown indication
     Route: 065
     Dates: start: 202411
  2. COSENTYX [Suspect]
     Active Substance: SECUKINUMAB
     Route: 065
  3. COSENTYX [Suspect]
     Active Substance: SECUKINUMAB
     Dosage: UNK UNK, Q3W
     Route: 065
  4. COSENTYX [Suspect]
     Active Substance: SECUKINUMAB
     Dosage: 150 MG, Q4W
     Route: 065

REACTIONS (12)
  - Neuropathy peripheral [Unknown]
  - Condition aggravated [Unknown]
  - Pruritus [Unknown]
  - Taste disorder [Recovering/Resolving]
  - Herpes virus infection [Unknown]
  - Chapped lips [Unknown]
  - Skin fissures [Unknown]
  - Skin odour abnormal [Recovering/Resolving]
  - Paronychia [Recovering/Resolving]
  - Mucosal disorder [Unknown]
  - Dry eye [Unknown]
  - Dry mouth [Unknown]
